FAERS Safety Report 11079329 (Version 1)
Quarter: 2015Q2

REPORT INFORMATION
  Report Type: Spontaneous
  Country: FR (occurrence: None)
  Receive Date: 20150428
  Receipt Date: 20150428
  Transmission Date: 20150821
  Serious: Yes (Hospitalization)
  Sender: FDA-Public Use
  Company Number: 2015SA043243

PATIENT
  Age: 82 Year
  Sex: Female

DRUGS (7)
  1. ACLASTA [Suspect]
     Active Substance: ZOLEDRONIC ACID
     Dosage: 1 DOSAGE FORM; EVERY CYCLE IV NOS
     Route: 042
     Dates: start: 20150311, end: 20150311
  2. COLCHIMAX (COLCHICINE/OPIUM/TIEMONIUM METHYLSULFATE) [Concomitant]
  3. KARDEGIC [Concomitant]
     Active Substance: ASPIRIN LYSINE
  4. CORTANCYL (PREDNISONE) [Concomitant]
     Active Substance: PREDNISONE
  5. TAHOR [Concomitant]
     Active Substance: ATORVASTATIN CALCIUM
  6. PLAQUENIL [Suspect]
     Active Substance: HYDROXYCHLOROQUINE SULFATE
     Indication: ARTHRITIS
     Route: 048
     Dates: start: 20150226, end: 20150314
  7. CARDENSIEL (BISOPROLOL FUMARATE) (BISOPROLOL FUMARATE) [Concomitant]
     Active Substance: BISOPROLOL

REACTIONS (10)
  - Pyrexia [None]
  - Acute generalised exanthematous pustulosis [None]
  - Biopsy skin abnormal [None]
  - Psoriasis [None]
  - Rash pustular [None]
  - Parakeratosis [None]
  - Neutrophilia [None]
  - Toxic skin eruption [None]
  - Rash erythematous [None]
  - Blood lactate dehydrogenase increased [None]

NARRATIVE: CASE EVENT DATE: 20150314
